FAERS Safety Report 23191621 (Version 1)
Quarter: 2023Q4

REPORT INFORMATION
  Report Type: Spontaneous
  Country: US (occurrence: None)
  Receive Date: 20231115
  Receipt Date: 20231115
  Transmission Date: 20240110
  Serious: Yes (Hospitalization)
  Sender: FDA-Public Use
  Company Number: None

PATIENT
  Age: 73 Year
  Sex: Female

DRUGS (1)
  1. LEXISCAN [Suspect]
     Active Substance: REGADENOSON
     Indication: Cardiac stress test
     Dosage: OTHER FREQUENCY : ONCE;?
     Route: 042
     Dates: start: 20231002, end: 20231002

REACTIONS (5)
  - Pleural effusion [None]
  - Hypervolaemia [None]
  - Dyspnoea [None]
  - Seizure [None]
  - Toxic encephalopathy [None]

NARRATIVE: CASE EVENT DATE: 20231003
